FAERS Safety Report 7507587-0 (Version None)
Quarter: 2011Q2

REPORT INFORMATION
  Report Type: 
  Country: None (occurrence: None)
  Receive Date: 20110526
  Receipt Date: 20100406
  Transmission Date: 20111010
  Serious: Yes (Other)
  Sender: FDA-Public Use
  Company Number: US-MYLANLABS-2010S1005980

PATIENT
  Age: 70 Year
  Sex: Female

DRUGS (4)
  1. CYCRIN [Suspect]
     Indication: MENOPAUSAL SYMPTOMS
     Dates: start: 19900101, end: 20020101
  2. MEDROXYPROGESTERONE [Suspect]
     Indication: MENOPAUSAL SYMPTOMS
     Dates: start: 19900101, end: 20020101
  3. ESTRADIOL [Suspect]
     Indication: MENOPAUSAL SYMPTOMS
     Dates: start: 19900101, end: 20020101
  4. ESTRADIOL [Suspect]
     Dates: start: 19900101, end: 20020101

REACTIONS (1)
  - BREAST CANCER IN SITU [None]
